FAERS Safety Report 23127395 (Version 4)
Quarter: 2023Q4

REPORT INFORMATION
  Report Type: Report from Study
  Country: US (occurrence: US)
  Receive Date: 20231031
  Receipt Date: 20231225
  Transmission Date: 20240110
  Serious: Yes (Life-Threatening, Other)
  Sender: FDA-Public Use
  Company Number: US-UCBSA-2023047129

PATIENT
  Sex: Male
  Weight: 62 kg

DRUGS (1)
  1. CERTOLIZUMAB PEGOL [Suspect]
     Active Substance: CERTOLIZUMAB PEGOL
     Indication: Ankylosing spondylitis
     Dosage: 400 MILLIGRAM, EV 2 WEEKS(QOW)
     Route: 058
     Dates: start: 20230923, end: 20230923

REACTIONS (7)
  - Anorectal infection [Recovering/Resolving]
  - Rectal abscess [Recovering/Resolving]
  - Abscess drainage [Unknown]
  - Drain placement [Unknown]
  - Lymphatic disorder [Not Recovered/Not Resolved]
  - Injection site haemorrhage [Recovering/Resolving]
  - Product storage error [Unknown]

NARRATIVE: CASE EVENT DATE: 20230101
